FAERS Safety Report 9146424 (Version 1)
Quarter: 2013Q1

REPORT INFORMATION
  Report Type: Report from Study
  Country: US (occurrence: US)
  Receive Date: 20130307
  Receipt Date: 20130307
  Transmission Date: 20140127
  Serious: Yes (Hospitalization)
  Sender: FDA-Public Use
  Company Number: US-ACTELION-A-NJ2011-43598

PATIENT
  Age: 70 Year
  Sex: Female

DRUGS (7)
  1. TRACLEER [Suspect]
     Indication: PULMONARY ARTERIAL HYPERTENSION
     Dosage: 125 MG, UNK
     Route: 048
     Dates: start: 20100401
  2. COUMADIN [Concomitant]
     Dosage: 2.5 MG, QD
  3. MELOXICAM [Concomitant]
     Dosage: 15 MG, UNK
  4. CITALOPRAM [Concomitant]
     Dosage: 40 MG, QD
  5. BISOPROLOL W/HYDROCHLOROTHIAZIDE [Concomitant]
     Dosage: 0.25 MG, UNK
  6. FENOFIBRATE [Concomitant]
     Dosage: 160 MG, QD
  7. PRAVACHOL [Concomitant]
     Dosage: 40 MG, UNK

REACTIONS (5)
  - Upper limb fracture [Recovered/Resolved]
  - Joint injury [Unknown]
  - Fall [Recovered/Resolved]
  - Depression [Recovering/Resolving]
  - Heart rate increased [Unknown]
